FAERS Safety Report 22883995 (Version 5)
Quarter: 2023Q4

REPORT INFORMATION
  Report Type: Report from Study
  Country: CA (occurrence: CA)
  Receive Date: 20230830
  Receipt Date: 20231214
  Transmission Date: 20240109
  Serious: Yes (Death, Hospitalization, Other)
  Sender: FDA-Public Use
  Company Number: CA-OTSUKA-2023_022746

PATIENT
  Age: 80 Year
  Sex: Female

DRUGS (1)
  1. CEDAZURIDINE\DECITABINE [Suspect]
     Active Substance: CEDAZURIDINE\DECITABINE
     Indication: Myelodysplastic syndrome
     Dosage: 1 DF (35 MG DECITABINE AND 100 MG CEDAZURIDINE) ONE PILL A DAY FOR 5 DAYS/CYCLE
     Route: 065
     Dates: start: 20230725

REACTIONS (18)
  - Death [Fatal]
  - White blood cell count abnormal [Unknown]
  - Iron overload [Unknown]
  - Transfusion [Unknown]
  - Osteoarthritis [Unknown]
  - Haemoglobin decreased [Unknown]
  - Feeling abnormal [Unknown]
  - Food aversion [Unknown]
  - Chills [Unknown]
  - Balance disorder [Unknown]
  - Fall [Unknown]
  - Insomnia [Unknown]
  - Decreased appetite [Unknown]
  - Asthenia [Unknown]
  - Dizziness [Unknown]
  - Dyspnoea [Unknown]
  - Fatigue [Unknown]
  - Drug ineffective [Unknown]

NARRATIVE: CASE EVENT DATE: 20231021
